FAERS Safety Report 21006002 (Version 4)
Quarter: 2023Q2

REPORT INFORMATION
  Report Type: Spontaneous
  Country: US (occurrence: US)
  Receive Date: 20220624
  Receipt Date: 20230424
  Transmission Date: 20230722
  Serious: Yes (Other)
  Sender: FDA-Public Use
  Company Number: US-HORIZON THERAPEUTICS-HZN-2022-004610

PATIENT

DRUGS (10)
  1. TEPROTUMUMAB-TRBW [Suspect]
     Active Substance: TEPROTUMUMAB-TRBW
     Indication: Endocrine ophthalmopathy
     Dosage: FIRST INFUSION, 10 MG/KG OVER 90 MIN
     Route: 042
  2. TEPROTUMUMAB-TRBW [Suspect]
     Active Substance: TEPROTUMUMAB-TRBW
     Dosage: SECOND INFUSION
     Route: 042
  3. TEPROTUMUMAB-TRBW [Suspect]
     Active Substance: TEPROTUMUMAB-TRBW
     Dosage: THIRD INFUSION
     Route: 042
  4. TEPROTUMUMAB-TRBW [Suspect]
     Active Substance: TEPROTUMUMAB-TRBW
     Dosage: FOURTH INFUSION
     Route: 042
  5. TEPROTUMUMAB-TRBW [Suspect]
     Active Substance: TEPROTUMUMAB-TRBW
     Dosage: FIFTH INFUSION
     Route: 042
  6. TEPROTUMUMAB-TRBW [Suspect]
     Active Substance: TEPROTUMUMAB-TRBW
     Dosage: SIXTH INFUSION
     Route: 042
  7. TEPROTUMUMAB-TRBW [Suspect]
     Active Substance: TEPROTUMUMAB-TRBW
     Dosage: SEVENTH INFUSION
     Route: 042
  8. TEPROTUMUMAB-TRBW [Suspect]
     Active Substance: TEPROTUMUMAB-TRBW
     Dosage: COMPETED THE WHOLE TEPROTUMUMAB TREATMENT COURSE OF 8 INFUSIONS
     Route: 042
  9. UNSPECIFIED INGREDIENT [Concomitant]
     Active Substance: UNSPECIFIED INGREDIENT
     Indication: Endocrine ophthalmopathy
     Route: 048
  10. METHIMAZOLE [Concomitant]
     Active Substance: METHIMAZOLE
     Indication: Graves^ disease
     Route: 065

REACTIONS (4)
  - Mixed deafness [Recovered/Resolved]
  - Tinnitus [Recovered/Resolved]
  - Ageusia [Unknown]
  - Taste disorder [Not Recovered/Not Resolved]
